FAERS Safety Report 26215646 (Version 1)
Quarter: 2025Q4

REPORT INFORMATION
  Report Type: Spontaneous
  Country: ZA (occurrence: ZA)
  Receive Date: 20251231
  Receipt Date: 20251231
  Transmission Date: 20260118
  Serious: Yes (Death)
  Sender: AMGEN
  Company Number: ZA-AMGEN-ZAFSP2025254959

PATIENT
  Age: 53 Year

DRUGS (1)
  1. ARANESP [Suspect]
     Active Substance: DARBEPOETIN ALFA
     Indication: Product used for unknown indication
     Dosage: UNK
     Route: 065
     Dates: start: 20250319

REACTIONS (1)
  - Death [Fatal]

NARRATIVE: CASE EVENT DATE: 20251107
